FAERS Safety Report 5587731-5 (Version None)
Quarter: 2007Q4

REPORT INFORMATION
  Report Type: 
  Country: None (occurrence: None)
  Receive Date: 20071210
  Receipt Date: 20070406
  Transmission Date: 20080405
  Serious: Yes (Other)
  Sender: FDA-Public Use
  Company Number: SPV1-2007-01615

PATIENT
  Age: 12 Year
  Sex: Male
  Weight: 31.7 kg

DRUGS (1)
  1. ADDERALL 10 [Suspect]
     Indication: ATTENTION DEFICIT/HYPERACTIVITY DISORDER
     Dosage: 5 MG, 1X/DAY, QD, ORAL
     Route: 048
     Dates: start: 20070215, end: 20070315

REACTIONS (3)
  - CONVULSION [None]
  - DROOLING [None]
  - SOMNOLENCE [None]
